FAERS Safety Report 21471278 (Version 1)
Quarter: 2022Q4

REPORT INFORMATION
  Report Type: Other
  Country: US (occurrence: None)
  Receive Date: 20221018
  Receipt Date: 20221018
  Transmission Date: 20230113
  Serious: Yes (Other)
  Sender: FDA-Public Use
  Company Number: US-ROCHE-3198362

PATIENT
  Age: 51 Year
  Sex: Female
  Weight: 90.800 kg

DRUGS (9)
  1. OCREVUS [Suspect]
     Active Substance: OCRELIZUMAB
     Indication: Relapsing-remitting multiple sclerosis
     Dosage: SHE HAD THE 2 HALF DOSE INFUSION AND WILL HAVE THE FULL DOSE OF 600 MG INFUSION IN /NOV/2022 ;ONGOIN
     Route: 042
     Dates: start: 20220331
  2. BACLOFEN [Concomitant]
     Active Substance: BACLOFEN
  3. HYDROCHLOROTHIAZIDE [Concomitant]
     Active Substance: HYDROCHLOROTHIAZIDE
  4. TELMISARTAN [Concomitant]
     Active Substance: TELMISARTAN
  5. LOSARTAN [Concomitant]
     Active Substance: LOSARTAN
  6. AMANTADINE [Concomitant]
     Active Substance: AMANTADINE
  7. SERTRALINE [Concomitant]
     Active Substance: SERTRALINE HYDROCHLORIDE
  8. VITAMIN D3 [Concomitant]
     Active Substance: CHOLECALCIFEROL
  9. FOLIC ACID [Concomitant]
     Active Substance: FOLIC ACID

REACTIONS (5)
  - Urinary tract infection [Not Recovered/Not Resolved]
  - Memory impairment [Not Recovered/Not Resolved]
  - Muscle spasms [Not Recovered/Not Resolved]
  - Sensory loss [Not Recovered/Not Resolved]
  - Pain [Not Recovered/Not Resolved]
